FAERS Safety Report 5610754-4 (Version None)
Quarter: 2008Q1

REPORT INFORMATION
  Report Type: 
  Country: None (occurrence: None)
  Receive Date: 20080201
  Receipt Date: 20080122
  Transmission Date: 20080703
  Serious: Yes (Hospitalization, Other)
  Sender: FDA-Public Use
  Company Number: IT-AVENTIS-200810962GDDC

PATIENT
  Age: 41 Year
  Sex: Female

DRUGS (3)
  1. FLUOROURACIL [Suspect]
     Indication: BREAST CANCER
     Route: 042
     Dates: start: 20060901, end: 20060901
  2. EPIRUBICIN [Suspect]
     Indication: BREAST CANCER
     Route: 042
     Dates: start: 20060901, end: 20060901
  3. CYCLOPHOSPHAMIDE [Suspect]
     Indication: BREAST CANCER
     Route: 042
     Dates: start: 20060901, end: 20060901

REACTIONS (7)
  - DISINHIBITION [None]
  - DISTURBANCE IN ATTENTION [None]
  - HEPATIC FUNCTION ABNORMAL [None]
  - INSOMNIA [None]
  - LOGORRHOEA [None]
  - MANIA [None]
  - PSYCHOMOTOR HYPERACTIVITY [None]
